FAERS Safety Report 8475210-7 (Version None)
Quarter: 2012Q2

REPORT INFORMATION
  Report Type: 
  Country: None (occurrence: None)
  Receive Date: 20120628
  Receipt Date: 20120619
  Transmission Date: 20120825
  Serious: Yes (Hospitalization)
  Sender: FDA-Public Use
  Company Number: US-JNJFOC-20110809904

PATIENT
  Sex: Male
  Weight: 70.76 kg

DRUGS (11)
  1. FERROUS SULFATE TAB [Concomitant]
     Dosage: IN ORANGE JUICE
     Route: 065
  2. ZINC SULFATE [Concomitant]
     Route: 065
  3. PENTASA [Concomitant]
     Indication: CROHN'S DISEASE
     Route: 048
  4. PENTASA [Concomitant]
     Route: 048
  5. LEXAPRO [Concomitant]
     Route: 065
  6. MAGNESIUM SULFATE [Concomitant]
     Route: 065
  7. REMICADE [Suspect]
     Route: 042
     Dates: start: 20070101
  8. REMICADE [Suspect]
     Indication: CROHN'S DISEASE
     Route: 042
  9. PREDNISONE TAB [Concomitant]
     Indication: CROHN'S DISEASE
     Route: 048
  10. SEROQUEL [Concomitant]
     Route: 065
  11. VITAMIN B-12 [Concomitant]
     Route: 060

REACTIONS (9)
  - OEDEMA PERIPHERAL [None]
  - WEIGHT FLUCTUATION [None]
  - THROMBOSIS [None]
  - PETECHIAE [None]
  - FISTULA [None]
  - SURGERY [None]
  - BLOOD ALBUMIN ABNORMAL [None]
  - SWELLING [None]
  - DEPRESSION [None]
